FAERS Safety Report 13582933 (Version 3)
Quarter: 2017Q3

REPORT INFORMATION
  Report Type: Spontaneous
  Country: ES (occurrence: ES)
  Receive Date: 20170525
  Receipt Date: 20170802
  Transmission Date: 20171127
  Serious: Yes (Other)
  Sender: FDA-Public Use
  Company Number: ES-PFIZER INC-2017223236

PATIENT
  Age: 37 Year
  Sex: Male

DRUGS (1)
  1. BENEFIX [Suspect]
     Active Substance: COAGULATION FACTOR IX RECOMBINANT HUMAN\ISOPROPYL ALCOHOL
     Dosage: UNK
     Dates: start: 2000

REACTIONS (4)
  - Drug administration error [Unknown]
  - Haemarthrosis [Unknown]
  - Pain [Unknown]
  - Inappropriate schedule of drug administration [Unknown]
